FAERS Safety Report 6610840-6 (Version None)
Quarter: 2010Q1

REPORT INFORMATION
  Report Type: 
  Country: None (occurrence: None)
  Receive Date: 20100219
  Receipt Date: 20100206
  Transmission Date: 20100710
  Serious: Yes (Hospitalization, Other)
  Sender: FDA-Public Use
  Company Number: 2010AP000237

PATIENT
  Age: 55 Year
  Sex: Female

DRUGS (17)
  1. PRAVASTATIN SODIUM [Suspect]
  2. LITHIUM CARBONATE [Suspect]
     Dosage: 625 MG;QD
  3. CARBAMAZEPINE [Suspect]
     Dosage: 10 MG; QD
  4. OLANZAPINE [Suspect]
     Dosage: 10 MG;QD
  5. VALPROIC ACID [Suspect]
  6. PAROXETINE HCL [Concomitant]
  7. MIRTAZAPINE [Concomitant]
  8. VENLAFAXINE HCL [Concomitant]
  9. IMIPRAMINE [Concomitant]
  10. TRIMIPRAMINE MALEATE [Concomitant]
  11. MAPROTILINE [Concomitant]
  12. SERTRALINE HCL [Concomitant]
  13. ARIPIPRAZOLE [Concomitant]
  14. QUETIAPINE (QUETIAPINE) [Concomitant]
  15. LORAZEPAM [Concomitant]
  16. MAGNSEIUM (MAGNESIUM) [Concomitant]
  17. LEVOTHYROXINE SODIUM [Concomitant]

REACTIONS (19)
  - AGORAPHOBIA [None]
  - DEPRESSION [None]
  - DERMATITIS ALLERGIC [None]
  - DRUG INEFFECTIVE [None]
  - DRUG INTERACTION [None]
  - ECZEMA [None]
  - EYE PRURITUS [None]
  - HALLUCINATION, AUDITORY [None]
  - HYPERLIPIDAEMIA [None]
  - PANIC ATTACK [None]
  - PERSONALITY DISORDER [None]
  - PSYCHOTIC DISORDER [None]
  - RASH [None]
  - SEDATION [None]
  - SKIN LESION [None]
  - SUICIDAL IDEATION [None]
  - SUICIDE ATTEMPT [None]
  - TREATMENT NONCOMPLIANCE [None]
  - WEIGHT INCREASED [None]
